FAERS Safety Report 6425128-6 (Version None)
Quarter: 2009Q4

REPORT INFORMATION
  Report Type: 
  Country: None (occurrence: None)
  Receive Date: 20091029
  Receipt Date: 20090116
  Transmission Date: 20100525
  Serious: Yes (Other)
  Sender: FDA-Public Use
  Company Number: 56148

PATIENT
  Sex: Female

DRUGS (1)
  1. CARBOPLATIN [Suspect]
     Indication: BREAST CANCER
     Dosage: 275MG CYC IV
     Route: 042

REACTIONS (1)
  - ANAPHYLACTIC SHOCK [None]
